FAERS Safety Report 24149650 (Version 1)
Quarter: 2024Q3

REPORT INFORMATION
  Report Type: Spontaneous
  Country: IN (occurrence: IN)
  Receive Date: 20240730
  Receipt Date: 20240730
  Transmission Date: 20241017
  Serious: Yes (Other)
  Sender: GLENMARK
  Company Number: IN-GLENMARK PHARMACEUTICALS-2024GMK092627

PATIENT

DRUGS (1)
  1. APREMILAST [Suspect]
     Active Substance: APREMILAST
     Indication: Type 2 lepra reaction
     Dosage: 10 MILLIGRAM, AM (10 MG MORNING DOSE WITH A DAILY INCREMENT OF 10 MG UNTIL DAY 6, WHEN THE RECOMMEND
     Route: 048

REACTIONS (4)
  - Type 2 lepra reaction [Unknown]
  - Disease recurrence [Unknown]
  - Therapy non-responder [Unknown]
  - Off label use [Unknown]
